FAERS Safety Report 6740112-0 (Version None)
Quarter: 2010Q2

REPORT INFORMATION
  Report Type: 
  Country: None (occurrence: None)
  Receive Date: 20100520
  Receipt Date: 20100305
  Transmission Date: 20101027
  Serious: Yes (Other)
  Sender: FDA-Public Use
  Company Number: 2010029163

PATIENT
  Age: 35 Year
  Sex: Female
  Weight: 114 kg

DRUGS (2)
  1. DEPO-PROVERA [Suspect]
     Indication: MENORRHAGIA
     Dosage: INTRAMUSCULAR
     Route: 030
     Dates: start: 20091214
  2. DEPO-PROVERA [Suspect]
     Indication: OFF LABEL USE
     Dosage: INTRAMUSCULAR
     Route: 030
     Dates: start: 20091214

REACTIONS (7)
  - ALOPECIA [None]
  - DYSMENORRHOEA [None]
  - HYPOAESTHESIA [None]
  - METRORRHAGIA [None]
  - OEDEMA PERIPHERAL [None]
  - VAGINAL DISCHARGE [None]
  - WEIGHT INCREASED [None]
